FAERS Safety Report 9249001 (Version 1)
Quarter: 2013Q1

REPORT INFORMATION
  Report Type: Spontaneous
  Country: US (occurrence: None)
  Receive Date: 20130305
  Receipt Date: 20130305
  Transmission Date: 20140127
  Serious: Yes (Hospitalization)
  Sender: FDA-Public Use
  Company Number: 163-21880-12101184

PATIENT
  Age: 70 Year
  Sex: Female

DRUGS (17)
  1. REVLIMID (LENALIDOMIDE) [Suspect]
     Indication: PLASMA CELL MYELOMA
     Dates: start: 200901
  2. ALBUTEROL (SALBUTAMOL) [Concomitant]
  3. ALLOPURINOL [Suspect]
  4. ALPRAZOLAM (ALPRAZOLAM) [Concomitant]
  5. AMITRIPTYLINE/CHLORDIAZEPOXIDE) [Concomitant]
  6. DICLOFENAC SODIUM (DICLOFENAC SODIUM) [Concomitant]
  7. ENLAPRIL (ENLAPRIL) [Concomitant]
  8. ESCITALOPRAM (ESCITALOPRAM) [Concomitant]
  9. EZETIMIBE/SIMVASTATIN [Suspect]
  10. FLUTICASONE-SALMETEROL (GALENIC/FLUTICASONE/SALMETEROL/) [Concomitant]
  11. LEVOFLOXACIN [Concomitant]
  12. MAGNESIUM OXIDE (MAGNESIUM OXIDE) [Concomitant]
  13. METHYLPREDNISOLONE (METHYLPREDNISOLONE) [Concomitant]
  14. METOPROLOL SUCCINATE (METOPROLOL SUCCINATE) [Concomitant]
  15. PRIMIDONE (PRIMIDONE) [Concomitant]
  16. TRAMADOL (TRAMADOL) [Concomitant]
  17. WARFARIN (WARFARIN ) [Concomitant]

REACTIONS (2)
  - Pneumonia [None]
  - Infective exacerbation of chronic obstructive airways disease [None]
